FAERS Safety Report 16032596 (Version 2)
Quarter: 2019Q1

REPORT INFORMATION
  Report Type: Spontaneous
  Country: US (occurrence: US)
  Receive Date: 20190304
  Receipt Date: 20190320
  Transmission Date: 20190418
  Serious: Yes (Other)
  Sender: FDA-Public Use
  Company Number: US-AUROBINDO-AUR-APL-2019-011764

PATIENT

DRUGS (2)
  1. GUAIFENESINANDDEXTROMETHORPHAN1200/60MGEXTENDEDRELEASETABLET OTC [Suspect]
     Active Substance: DEXTROMETHORPHAN\GUAIFENESIN
     Indication: COUGH
     Dosage: UNK
     Route: 065
     Dates: start: 20190223
  2. GUAIFENESINANDDEXTROMETHORPHAN1200/60MGEXTENDEDRELEASETABLET OTC [Suspect]
     Active Substance: DEXTROMETHORPHAN\GUAIFENESIN
     Dosage: UNK
     Route: 065
     Dates: start: 20190224

REACTIONS (1)
  - Syncope [Recovering/Resolving]
